FAERS Safety Report 4750345-0 (Version None)
Quarter: 2005Q3

REPORT INFORMATION
  Report Type: 
  Country: None (occurrence: None)
  Receive Date: 20050818
  Receipt Date: 20050815
  Transmission Date: 20060218
  Serious: Yes (Other)
  Sender: FDA-Public Use
  Company Number: GB-2005-002513

PATIENT
  Age: 22 Year
  Sex: Female
  Weight: 65 kg

DRUGS (1)
  1. YASMIN [Suspect]
     Indication: ORAL CONTRACEPTION
     Dosage: 1X/DAY, ORAL
     Route: 048
     Dates: start: 20041106, end: 20041126

REACTIONS (4)
  - ACNE [None]
  - AMENORRHOEA [None]
  - CONDITION AGGRAVATED [None]
  - POLYCYSTIC OVARIES [None]
